FAERS Safety Report 16608151 (Version 1)
Quarter: 2019Q3

REPORT INFORMATION
  Report Type: Spontaneous
  Country: US (occurrence: US)
  Receive Date: 20190719
  Receipt Date: 20190719
  Transmission Date: 20191004
  Serious: Yes (Hospitalization)
  Sender: FDA-Public Use
  Company Number: None

PATIENT
  Age: 52 Year
  Sex: Female

DRUGS (7)
  1. MINOXIDIL. [Concomitant]
     Active Substance: MINOXIDIL
  2. AMLODIPINE [Concomitant]
     Active Substance: AMLODIPINE BESYLATE
  3. ENBREL [Suspect]
     Active Substance: ETANERCEPT
     Indication: RHEUMATOID ARTHRITIS
     Dosage: ?          OTHER FREQUENCY:QWK;?
     Route: 058
     Dates: start: 20171129, end: 20180825
  4. FUROSEMIDE. [Concomitant]
     Active Substance: FUROSEMIDE
  5. DILTIAZEM. [Concomitant]
     Active Substance: DILTIAZEM
  6. POTASSIUM [Concomitant]
     Active Substance: POTASSIUM
  7. VALSARTAN. [Concomitant]
     Active Substance: VALSARTAN

REACTIONS (3)
  - Pain [None]
  - Cerebrovascular accident [None]
  - Rheumatoid arthritis [None]

NARRATIVE: CASE EVENT DATE: 20181112
